FAERS Safety Report 23904961 (Version 1)
Quarter: 2024Q2

REPORT INFORMATION
  Report Type: Spontaneous
  Country: DE (occurrence: DE)
  Receive Date: 20240527
  Receipt Date: 20240527
  Transmission Date: 20240715
  Serious: Yes (Hospitalization)
  Sender: FDA-Public Use
  Company Number: DE-Long Grove-000050

PATIENT
  Age: 76 Year
  Sex: Female

DRUGS (1)
  1. TRIAMCINOLONE ACETONIDE [Suspect]
     Active Substance: TRIAMCINOLONE ACETONIDE
     Indication: Neuromyelitis optica spectrum disorder
     Dosage: EVERY 6 MONTHS WITH A CUMULATIVE DOSE OF 80MG OVER 2 DAYS.
     Route: 037
     Dates: start: 201906

REACTIONS (1)
  - Pleocytosis [Recovered/Resolved]
